FAERS Safety Report 5262873-2 (Version None)
Quarter: 2007Q1

REPORT INFORMATION
  Report Type: 
  Country: None (occurrence: None)
  Receive Date: 20070308
  Receipt Date: 20070221
  Transmission Date: 20070707
  Serious: Yes (Hospitalization)
  Sender: FDA-Public Use
  Company Number: GB-1161301

PATIENT
  Age: 65 Year
  Sex: Female

DRUGS (4)
  1. MAXIDEX OPHTHALMIC ( DEXAMETHASONE) 0.1% SUSPENSION [Suspect]
     Indication: ANGLE CLOSURE GLAUCOMA
     Dosage: EAR DROPS, OPHTHALMIC SUSPENSION
     Route: 047
  2. LOPIDINE(LOPIDINE)  1% [Suspect]
     Indication: ANGLE CLOSURE GLAUCOMA
     Dosage: OPHTHALMIC EYE DROPS, SOLUTION
     Route: 047
  3. PILOCARPINE [Suspect]
     Indication: ANGLE CLOSURE GLAUCOMA
     Dosage: OPHTHALMIC EYE DROPS, SOLUTION
     Route: 047
  4. ACETAZOLAMIDE [Concomitant]

REACTIONS (2)
  - RETINAL HAEMORRHAGE [None]
  - RETINOPATHY [None]
